FAERS Safety Report 4542330-9 (Version None)
Quarter: 2004Q4

REPORT INFORMATION
  Report Type: 
  Country: None (occurrence: None)
  Receive Date: 20041227
  Receipt Date: 20041208
  Transmission Date: 20050328
  Serious: Yes (Death, Hospitalization, Other)
  Sender: FDA-Public Use
  Company Number: 205740

PATIENT
  Age: 79 Year
  Sex: Female

DRUGS (16)
  1. AVONEX [Suspect]
     Indication: MULTIPLE SCLEROSIS
     Dosage: 30 UG; QW; IM
     Route: 030
     Dates: start: 20020429, end: 20040101
  2. AVONEX [Suspect]
     Indication: MULTIPLE SCLEROSIS
     Dosage: 30 UG; QW; IM
     Route: 030
     Dates: start: 20040101, end: 20040923
  3. BACLOFEN [Concomitant]
  4. ELAVIL [Concomitant]
  5. TIZANIDINE [Concomitant]
  6. DIOVAN [Concomitant]
  7. LIPITOR [Concomitant]
  8. PREVACID [Concomitant]
  9. AMBIEN [Concomitant]
  10. TYLOX [Concomitant]
  11. ATENOLOL [Concomitant]
  12. PROTONIX [Concomitant]
  13. DITROPAN [Concomitant]
  14. LIDODERM PATCH [Concomitant]
  15. NYSTATIN [Concomitant]
  16. NYSTATIN SWISH [Concomitant]

REACTIONS (22)
  - AKATHISIA [None]
  - BALANCE DISORDER [None]
  - BASAL CELL CARCINOMA [None]
  - CONDITION AGGRAVATED [None]
  - CONSTIPATION [None]
  - DYSPHONIA [None]
  - FALL [None]
  - FEMUR FRACTURE [None]
  - HYPERGLYCAEMIA [None]
  - HYPERTENSION [None]
  - LIP AND/OR ORAL CAVITY CANCER [None]
  - LYMPHADENOPATHY MEDIASTINAL [None]
  - METASTASES TO CHEST WALL [None]
  - METASTASES TO LUNG [None]
  - METASTATIC MALIGNANT MELANOMA [None]
  - MULTIPLE SCLEROSIS [None]
  - PSEUDOMONAS INFECTION [None]
  - SMALL CELL CARCINOMA [None]
  - TIBIA FRACTURE [None]
  - TINEA CRURIS [None]
  - TRAUMATIC FRACTURE [None]
  - URINARY TRACT INFECTION BACTERIAL [None]
